FAERS Safety Report 4384820-8 (Version None)
Quarter: 2004Q2

REPORT INFORMATION
  Report Type: 
  Country: None (occurrence: None)
  Receive Date: 20040625
  Receipt Date: 20040615
  Transmission Date: 20050107
  Serious: Yes (Hospitalization, Other)
  Sender: FDA-Public Use
  Company Number: PT-BRISTOL-MYERS SQUIBB COMPANY-12618625

PATIENT
  Age: 39 Year
  Sex: Male

DRUGS (7)
  1. VIDEX [Suspect]
     Indication: HIV INFECTION
     Route: 048
     Dates: start: 20000101
  2. ISONIAZID [Interacting]
     Indication: TUBERCULOSIS PROPHYLAXIS
     Route: 048
     Dates: start: 20040501, end: 20040501
  3. ZIDOVUDINE [Interacting]
     Indication: HIV INFECTION
     Route: 048
     Dates: start: 20000101
  4. LAMIVUDINE [Interacting]
     Indication: HIV INFECTION
     Route: 048
     Dates: start: 20000101
  5. CLONIDINE HCL [Concomitant]
     Indication: HYPERTENSION
     Route: 048
     Dates: start: 20010101
  6. MINOXIDIL [Concomitant]
     Indication: HYPERTENSION
     Route: 048
     Dates: start: 20031001
  7. LISINOPRIL [Concomitant]
     Indication: HYPERTENSION
     Route: 048
     Dates: start: 20010101

REACTIONS (7)
  - ALANINE AMINOTRANSFERASE INCREASED [None]
  - BLOOD ALKALINE PHOSPHATASE INCREASED [None]
  - BLOOD LACTATE DEHYDROGENASE INCREASED [None]
  - CONFUSIONAL STATE [None]
  - DRUG INTERACTION [None]
  - GAMMA-GLUTAMYLTRANSFERASE INCREASED [None]
  - HEPATITIS TOXIC [None]
